FAERS Safety Report 9470352 (Version 2)
Quarter: 2013Q3

REPORT INFORMATION
  Report Type: Spontaneous
  Country: US (occurrence: US)
  Receive Date: 20130822
  Receipt Date: 20130822
  Transmission Date: 20140515
  Serious: Yes (Other)
  Sender: FDA-Public Use
  Company Number: US-SANOFI-AVENTIS-2013SA002172

PATIENT
  Age: 78 Year
  Sex: Male

DRUGS (7)
  1. MULTAQ [Suspect]
     Indication: ATRIAL FIBRILLATION
     Route: 048
     Dates: start: 20101013, end: 20130104
  2. HYZAAR [Concomitant]
     Dosage: 25/50 DAILY
  3. HYTRIN [Concomitant]
     Indication: HYPERTENSION
  4. METOPROLOL [Concomitant]
  5. METFORMIN [Concomitant]
  6. LIPITOR /UNK/ [Concomitant]
  7. LIPITOR /UNK/ [Concomitant]

REACTIONS (6)
  - Cardiac failure congestive [Recovering/Resolving]
  - Ejection fraction decreased [Recovering/Resolving]
  - Fatigue [Recovering/Resolving]
  - Dyspnoea [Recovering/Resolving]
  - Weight increased [Recovering/Resolving]
  - Local swelling [Recovering/Resolving]
